FAERS Safety Report 10357925 (Version 1)
Quarter: 2014Q3

REPORT INFORMATION
  Report Type: Spontaneous
  Country: FR (occurrence: FR)
  Receive Date: 20140801
  Receipt Date: 20140801
  Transmission Date: 20150326
  Serious: Yes (Life-Threatening)
  Sender: FDA-Public Use
  Company Number: FR-VIIV HEALTHCARE LIMITED-B1017736A

PATIENT
  Age: 0 Day
  Sex: Female

DRUGS (8)
  1. IBUPROFEN. [Suspect]
     Active Substance: IBUPROFEN
     Indication: PATENT DUCTUS ARTERIOSUS
     Route: 042
     Dates: start: 20140701, end: 20140702
  2. ISENTRESS [Concomitant]
     Active Substance: RALTEGRAVIR POTASSIUM
     Indication: HIV INFECTION
     Route: 064
  3. KARDEGIC [Concomitant]
     Active Substance: ASPIRIN LYSINE
     Route: 064
  4. TARDYFERON B9 [Concomitant]
     Active Substance: FERROUS SULFATE\FOLIC ACID
     Route: 064
  5. AMPICILLIN [Concomitant]
     Active Substance: AMPICILLIN
     Indication: NEONATAL INFECTION
     Route: 042
     Dates: start: 20140701, end: 20140703
  6. RETROVIR [Suspect]
     Active Substance: ZIDOVUDINE
     Indication: ANTIVIRAL PROPHYLAXIS
     Dosage: .3MGK TWICE PER DAY
     Route: 042
     Dates: start: 20140701, end: 20140707
  7. GENTAMICIN [Concomitant]
     Active Substance: GENTAMICIN
     Indication: NEONATAL INFECTION
     Route: 042
     Dates: start: 20140701, end: 20140703
  8. TRUVADA [Concomitant]
     Active Substance: EMTRICITABINE\TENOFOVIR DISOPROXIL FUMARATE
     Indication: HIV INFECTION
     Route: 064

REACTIONS (7)
  - Intestinal perforation [Recovered/Resolved]
  - Anaemia [Not Recovered/Not Resolved]
  - Ascites [Unknown]
  - Eosinophilia [Unknown]
  - Abdominal distension [Unknown]
  - Pneumoperitoneum [Unknown]
  - Staphylococcal sepsis [Unknown]

NARRATIVE: CASE EVENT DATE: 201407
